FAERS Safety Report 6635354-9 (Version None)
Quarter: 2010Q1

REPORT INFORMATION
  Report Type: 
  Country: None (occurrence: None)
  Receive Date: 20100311
  Receipt Date: 20100311
  Transmission Date: 20100710
  Serious: Yes (Life-Threatening, Hospitalization, Disabling)
  Sender: FDA-Public Use
  Company Number: None

PATIENT
  Age: 86 Year
  Sex: Female
  Weight: 63.05 kg

DRUGS (7)
  1. KEPPRA [Suspect]
     Indication: CONVULSION
     Dosage: 1000 MG BID IV
     Route: 042
     Dates: start: 20090618, end: 20090707
  2. AMIODARONE HCL [Concomitant]
  3. CARVEDILOL [Concomitant]
  4. CASPOFUGIN [Concomitant]
  5. GENTAMICIN [Concomitant]
  6. DILTIAZEM HCL [Concomitant]
  7. VANCOMYCIN [Concomitant]

REACTIONS (3)
  - DEVICE RELATED INFECTION [None]
  - ENCEPHALOPATHY [None]
  - SEPSIS [None]
